FAERS Safety Report 11347414 (Version 1)
Quarter: 2015Q3

REPORT INFORMATION
  Report Type: Spontaneous
  Country: US (occurrence: US)
  Receive Date: 20150803
  Receipt Date: 20150803
  Transmission Date: 20151125
  Serious: No
  Sender: FDA-Public Use
  Company Number: US-ELI_LILLY_AND_COMPANY-US201106007253

PATIENT
  Age: 57 Year
  Sex: Male

DRUGS (3)
  1. ZYPREXA [Suspect]
     Active Substance: OLANZAPINE
     Dosage: 30 MG, QD
     Dates: start: 20110606
  2. ZYPREXA [Suspect]
     Active Substance: OLANZAPINE
     Dosage: 10 MG, QD
     Dates: start: 20110616
  3. ZYPREXA [Suspect]
     Active Substance: OLANZAPINE
     Dosage: 40 MG, QD
     Dates: start: 20110615

REACTIONS (5)
  - Feeling drunk [Unknown]
  - Prescribed overdose [Unknown]
  - Dyspepsia [Unknown]
  - Anxiety [Unknown]
  - Fear [Unknown]
